FAERS Safety Report 15028471 (Version 1)
Quarter: 2018Q2

REPORT INFORMATION
  Report Type: Report from Study
  Country: DE (occurrence: DE)
  Receive Date: 20180619
  Receipt Date: 20180619
  Transmission Date: 20180711
  Serious: Yes (Hospitalization, Other)
  Sender: FDA-Public Use
  Company Number: DE-GLAXOSMITHKLINE-DE2018103624

PATIENT
  Sex: Female
  Weight: 49 kg

DRUGS (100)
  1. OXALIPLATIN. [Suspect]
     Active Substance: OXALIPLATIN
     Dosage: 135 MG, UNK
     Route: 042
     Dates: start: 20170613, end: 20170613
  2. PERFALGAN [Suspect]
     Active Substance: ACETAMINOPHEN
     Indication: PRODUCT USED FOR UNKNOWN INDICATION
     Dosage: UNK
     Route: 065
  3. FLUOROURACIL. [Suspect]
     Active Substance: FLUOROURACIL
     Indication: ADENOCARCINOMA GASTRIC
     Dosage: 3816 UNK
     Route: 042
     Dates: start: 20170413, end: 20170415
  4. FLUOROURACIL. [Suspect]
     Active Substance: FLUOROURACIL
     Dosage: 3816 UNK
     Route: 042
     Dates: start: 20170511, end: 20170513
  5. FLUOROURACIL. [Suspect]
     Active Substance: FLUOROURACIL
     Dosage: 3816 UNK
     Route: 042
     Dates: start: 20170627, end: 20170629
  6. FLUOROURACIL. [Suspect]
     Active Substance: FLUOROURACIL
     Dosage: 3816 UNK
     Route: 042
     Dates: start: 20171128, end: 20171130
  7. FLUOROURACIL. [Suspect]
     Active Substance: FLUOROURACIL
     Dosage: 3816 UNK
     Route: 042
     Dates: start: 20170530, end: 20170601
  8. FLUOROURACIL. [Suspect]
     Active Substance: FLUOROURACIL
     Dosage: 636 UNK
     Route: 042
     Dates: start: 20170530, end: 20170530
  9. FLUOROURACIL. [Suspect]
     Active Substance: FLUOROURACIL
     Dosage: 636 UNK
     Route: 042
     Dates: start: 20170822, end: 20170822
  10. FLUOROURACIL. [Suspect]
     Active Substance: FLUOROURACIL
     Dosage: 636 UNK
     Route: 042
     Dates: start: 20180405, end: 20180405
  11. ADDEL N [Concomitant]
     Active Substance: UNSPECIFIED INGREDIENT
     Indication: PRODUCT USED FOR UNKNOWN INDICATION
     Dosage: UNK
     Route: 065
     Dates: start: 20180406, end: 20180406
  12. LYRICA [Concomitant]
     Active Substance: PREGABALIN
     Indication: PRODUCT USED FOR UNKNOWN INDICATION
     Dosage: UNK
     Route: 065
  13. FOLINIC ACID [Suspect]
     Active Substance: LEUCOVORIN
     Dosage: 636 UNK
     Route: 042
     Dates: start: 20170711, end: 20170711
  14. FOLINIC ACID [Suspect]
     Active Substance: LEUCOVORIN
     Dosage: 636 MG
     Route: 042
     Dates: start: 20171004, end: 20171004
  15. FOLINIC ACID [Suspect]
     Active Substance: LEUCOVORIN
     Dosage: 636 MG, UNK
     Route: 042
     Dates: start: 20171114, end: 20171114
  16. FOLINIC ACID [Suspect]
     Active Substance: LEUCOVORIN
     Dosage: UNK
  17. OXALIPLATIN. [Suspect]
     Active Substance: OXALIPLATIN
     Dosage: 135 MG, UNK
     Route: 042
     Dates: start: 20170316, end: 20170316
  18. FLUOROURACIL. [Suspect]
     Active Substance: FLUOROURACIL
     Dosage: 3816 UNK
     Route: 042
     Dates: start: 20170725, end: 20170727
  19. FLUOROURACIL. [Suspect]
     Active Substance: FLUOROURACIL
     Dosage: 636 UNK
     Route: 042
     Dates: start: 20180222, end: 20180222
  20. FLUOROURACIL. [Suspect]
     Active Substance: FLUOROURACIL
     Dosage: 3816 UNK
     Route: 042
     Dates: start: 20180322, end: 20180324
  21. FLUOROURACIL. [Suspect]
     Active Substance: FLUOROURACIL
     Dosage: 3816 MG, UNK
     Route: 042
     Dates: start: 20180208, end: 20180210
  22. FLUOROURACIL. [Suspect]
     Active Substance: FLUOROURACIL
     Dosage: 636 UNK
     Route: 042
     Dates: start: 20170427, end: 20170427
  23. FLUOROURACIL. [Suspect]
     Active Substance: FLUOROURACIL
     Dosage: 3816 UNK
     Route: 042
     Dates: start: 20180125, end: 20180127
  24. FLUOROURACIL. [Suspect]
     Active Substance: FLUOROURACIL
     Dosage: 636 UNK
     Route: 042
     Dates: start: 20170919, end: 20170919
  25. RINGERS SOLUTION [Concomitant]
     Active Substance: CALCIUM CHLORIDE\POTASSIUM CHLORIDE\SODIUM CHLORIDE
     Indication: PRODUCT USED FOR UNKNOWN INDICATION
     Dosage: UNK
     Route: 065
     Dates: start: 20180406, end: 20180406
  26. FOLINIC ACID [Suspect]
     Active Substance: LEUCOVORIN
     Dosage: 636 MG, UNK
     Route: 042
     Dates: start: 20180222, end: 20180222
  27. TRAMAL [Suspect]
     Active Substance: TRAMADOL
     Indication: PRODUCT USED FOR UNKNOWN INDICATION
     Dosage: UNK
     Route: 065
  28. FLUOROURACIL. [Suspect]
     Active Substance: FLUOROURACIL
     Dosage: 3816 UNK
     Route: 042
     Dates: start: 20170302, end: 20170304
  29. FLUOROURACIL. [Suspect]
     Active Substance: FLUOROURACIL
     Dosage: 636 UNK
     Route: 042
     Dates: start: 20170302, end: 20170302
  30. FLUOROURACIL. [Suspect]
     Active Substance: FLUOROURACIL
     Dosage: 3816 UNK
     Route: 042
     Dates: start: 20170919, end: 20170921
  31. FLUOROURACIL. [Suspect]
     Active Substance: FLUOROURACIL
     Dosage: 636 UNK
     Route: 042
     Dates: start: 20170330, end: 20170330
  32. FLUOROURACIL. [Suspect]
     Active Substance: FLUOROURACIL
     Dosage: 3816 UNK
     Route: 042
     Dates: start: 20171212, end: 20171214
  33. FLUOROURACIL. [Suspect]
     Active Substance: FLUOROURACIL
     Dosage: 3816 MG, UNK
     Route: 042
     Dates: start: 20180222, end: 20180224
  34. FLUOROURACIL. [Suspect]
     Active Substance: FLUOROURACIL
     Dosage: 3816 UNK
     Route: 042
     Dates: start: 20171017, end: 20171019
  35. FLUOROURACIL. [Suspect]
     Active Substance: FLUOROURACIL
     Dosage: 636 UNK
     Route: 042
     Dates: start: 20170711, end: 20170711
  36. PANTOPRAZOLE [Concomitant]
     Active Substance: PANTOPRAZOLE
     Indication: PRODUCT USED FOR UNKNOWN INDICATION
     Dosage: UNK
     Route: 065
  37. METOCLOPRAMIDE. [Concomitant]
     Active Substance: METOCLOPRAMIDE
     Indication: PRODUCT USED FOR UNKNOWN INDICATION
     Dosage: UNK
     Route: 065
  38. FOLINIC ACID [Suspect]
     Active Substance: LEUCOVORIN
     Indication: ADENOCARCINOMA GASTRIC
     Dosage: 636 UNK
     Route: 042
     Dates: start: 20170302, end: 20170302
  39. FOLINIC ACID [Suspect]
     Active Substance: LEUCOVORIN
     Dosage: 636 UNK
     Route: 042
     Dates: start: 20170316, end: 20170316
  40. FOLINIC ACID [Suspect]
     Active Substance: LEUCOVORIN
     Dosage: 636 MG, UNK
     Route: 042
     Dates: start: 20170330, end: 20170330
  41. FOLINIC ACID [Suspect]
     Active Substance: LEUCOVORIN
     Dosage: 636 UNK
     Route: 042
     Dates: start: 20170808, end: 20170808
  42. OXALIPLATIN. [Suspect]
     Active Substance: OXALIPLATIN
     Dosage: 135 MG, UNK
     Route: 042
     Dates: start: 20170330, end: 20170330
  43. OXALIPLATIN. [Suspect]
     Active Substance: OXALIPLATIN
     Dosage: 135 UNK
     Route: 042
     Dates: start: 20170427, end: 20170427
  44. OXALIPLATIN. [Suspect]
     Active Substance: OXALIPLATIN
     Dosage: 135 UNK
     Route: 042
     Dates: start: 20170711, end: 20170711
  45. FLUOROURACIL. [Suspect]
     Active Substance: FLUOROURACIL
     Dosage: 3816 UNK
     Route: 042
     Dates: start: 20170613, end: 20170615
  46. FLUOROURACIL. [Suspect]
     Active Substance: FLUOROURACIL
     Dosage: 3816 UNK
     Route: 042
     Dates: start: 20171004, end: 20171006
  47. FLUOROURACIL. [Suspect]
     Active Substance: FLUOROURACIL
     Dosage: 636 UNK
     Route: 042
     Dates: start: 20171017, end: 20171017
  48. FLUOROURACIL. [Suspect]
     Active Substance: FLUOROURACIL
     Dosage: 3816 UNK
     Route: 042
     Dates: start: 20171114, end: 20171116
  49. FLUOROURACIL. [Suspect]
     Active Substance: FLUOROURACIL
     Dosage: 636 UNK
     Route: 042
     Dates: start: 20171004, end: 20171004
  50. XARELTO [Concomitant]
     Active Substance: RIVAROXABAN
     Indication: PRODUCT USED FOR UNKNOWN INDICATION
     Dosage: UNK
     Route: 065
  51. FOLINIC ACID [Suspect]
     Active Substance: LEUCOVORIN
     Dosage: 636 UNK
     Route: 042
     Dates: start: 20170413, end: 20170413
  52. FOLINIC ACID [Suspect]
     Active Substance: LEUCOVORIN
     Dosage: 636 UNK
     Route: 042
     Dates: start: 20170627, end: 20170627
  53. FOLINIC ACID [Suspect]
     Active Substance: LEUCOVORIN
     Dosage: 636 UNK
     Route: 042
     Dates: start: 20170919, end: 20170919
  54. FOLINIC ACID [Suspect]
     Active Substance: LEUCOVORIN
     Dosage: 636 UNK
     Route: 042
     Dates: start: 20171128, end: 20171128
  55. FOLINIC ACID [Suspect]
     Active Substance: LEUCOVORIN
     Dosage: 636 UNK
     Route: 042
     Dates: start: 20171212, end: 20171212
  56. FOLINIC ACID [Suspect]
     Active Substance: LEUCOVORIN
     Dosage: 636 UNK
     Route: 042
     Dates: start: 20170613, end: 20170613
  57. FLUOROURACIL. [Suspect]
     Active Substance: FLUOROURACIL
     Dosage: 636 UNK
     Route: 042
     Dates: start: 20171101, end: 20171101
  58. FLUOROURACIL. [Suspect]
     Active Substance: FLUOROURACIL
     Dosage: 636 UNK
     Route: 042
     Dates: start: 20171114, end: 20171114
  59. FLUOROURACIL. [Suspect]
     Active Substance: FLUOROURACIL
     Dosage: 3816 UNK
     Route: 042
     Dates: start: 20170711, end: 20170713
  60. FLUOROURACIL. [Suspect]
     Active Substance: FLUOROURACIL
     Dosage: 3816 UNK
     Route: 042
     Dates: start: 20170427, end: 20170429
  61. FLUOROURACIL. [Suspect]
     Active Substance: FLUOROURACIL
     Dosage: 636 UNK
     Route: 042
     Dates: start: 20170413, end: 20170413
  62. FLUOROURACIL. [Suspect]
     Active Substance: FLUOROURACIL
     Dosage: 636 UNK
     Route: 042
     Dates: start: 20170627, end: 20170627
  63. FOLINIC ACID [Suspect]
     Active Substance: LEUCOVORIN
     Dosage: 636 UNK
     Route: 042
     Dates: start: 20171101, end: 20171101
  64. FOLINIC ACID [Suspect]
     Active Substance: LEUCOVORIN
     Dosage: 636 UNK
     Route: 042
     Dates: start: 20180125, end: 20180125
  65. FOLINIC ACID [Suspect]
     Active Substance: LEUCOVORIN
     Dosage: 636 UNK
     Route: 042
     Dates: start: 20180308, end: 20180308
  66. FOLINIC ACID [Suspect]
     Active Substance: LEUCOVORIN
     Dosage: 636 UNK
     Route: 042
     Dates: start: 20180208, end: 20180208
  67. OXALIPLATIN. [Suspect]
     Active Substance: OXALIPLATIN
     Indication: ADENOCARCINOMA GASTRIC
     Dosage: 135 UNK
     Route: 042
     Dates: start: 20170302, end: 20170302
  68. CLEXANE [Suspect]
     Active Substance: ENOXAPARIN SODIUM
     Indication: PRODUCT USED FOR UNKNOWN INDICATION
     Dosage: UNK
     Route: 065
  69. FLUOROURACIL. [Suspect]
     Active Substance: FLUOROURACIL
     Dosage: 636 UNK
     Route: 042
     Dates: start: 20170808, end: 20170808
  70. FLUOROURACIL. [Suspect]
     Active Substance: FLUOROURACIL
     Dosage: 636 UNK
     Route: 042
     Dates: start: 20170511, end: 20170511
  71. FLUOROURACIL. [Suspect]
     Active Substance: FLUOROURACIL
     Dosage: 3816 UNK
     Route: 042
     Dates: start: 20180308, end: 20180310
  72. FLUOROURACIL. [Suspect]
     Active Substance: FLUOROURACIL
     Dosage: 636 UNK
     Route: 042
     Dates: start: 20170302, end: 20170302
  73. FLUOROURACIL. [Suspect]
     Active Substance: FLUOROURACIL
     Dosage: 636 UNK
     Route: 042
     Dates: start: 20170316, end: 20170316
  74. FLUOROURACIL. [Suspect]
     Active Substance: FLUOROURACIL
     Dosage: 636 UNK
     Route: 042
     Dates: start: 20170613, end: 20170613
  75. MOVICOL [Concomitant]
     Active Substance: POLYETHYLENE GLYCOL 3350\POTASSIUM CHLORIDE\SODIUM BICARBONATE\SODIUM CHLORIDE
     Indication: PRODUCT USED FOR UNKNOWN INDICATION
     Dosage: UNK
     Route: 065
  76. DICLOFENAC [Suspect]
     Active Substance: DICLOFENAC
     Indication: PRODUCT USED FOR UNKNOWN INDICATION
     Dosage: UNK
     Route: 065
  77. FOLINIC ACID [Suspect]
     Active Substance: LEUCOVORIN
     Dosage: 636 UNK
     Route: 042
     Dates: start: 20170427, end: 20170427
  78. FOLINIC ACID [Suspect]
     Active Substance: LEUCOVORIN
     Dosage: 636 UNK
     Route: 042
     Dates: start: 20170511, end: 20170511
  79. FOLINIC ACID [Suspect]
     Active Substance: LEUCOVORIN
     Dosage: 636 UNK
     Route: 042
     Dates: start: 20170530, end: 20170530
  80. FOLINIC ACID [Suspect]
     Active Substance: LEUCOVORIN
     Dosage: 636 UNK
     Route: 042
     Dates: start: 20170725, end: 20170725
  81. FOLINIC ACID [Suspect]
     Active Substance: LEUCOVORIN
     Dosage: 636 MG, UNK
     Route: 042
     Dates: start: 20170822, end: 20170822
  82. FOLINIC ACID [Suspect]
     Active Substance: LEUCOVORIN
     Dosage: 636 MG, UNK
     Route: 042
     Dates: start: 20180405, end: 20180405
  83. FOLINIC ACID [Suspect]
     Active Substance: LEUCOVORIN
     Dosage: 636 UNK
     Route: 042
     Dates: start: 20180322, end: 20180322
  84. OXALIPLATIN. [Suspect]
     Active Substance: OXALIPLATIN
     Dosage: 135,UNK
     Route: 042
     Dates: start: 20170413, end: 20170413
  85. OXALIPLATIN. [Suspect]
     Active Substance: OXALIPLATIN
     Dosage: 135 MG, UNK
     Route: 042
     Dates: start: 20170725, end: 20170725
  86. FLUOROURACIL. [Suspect]
     Active Substance: FLUOROURACIL
     Dosage: 3816 UNK
     Route: 042
     Dates: start: 20171101, end: 20171103
  87. FLUOROURACIL. [Suspect]
     Active Substance: FLUOROURACIL
     Dosage: 3816 UNK
     Route: 042
     Dates: start: 20170822, end: 20170824
  88. FLUOROURACIL. [Suspect]
     Active Substance: FLUOROURACIL
     Dosage: 3816 UNK
     Route: 042
     Dates: start: 20170808, end: 20170810
  89. FLUOROURACIL. [Suspect]
     Active Substance: FLUOROURACIL
     Dosage: 3816 UNK
     Route: 042
     Dates: start: 20170330, end: 20170401
  90. FLUOROURACIL. [Suspect]
     Active Substance: FLUOROURACIL
     Dosage: 3816 UNK
     Route: 042
     Dates: start: 20180405, end: 20180407
  91. FOLINIC ACID [Suspect]
     Active Substance: LEUCOVORIN
     Dosage: 636 MG, UNK
     Route: 042
     Dates: start: 20171017, end: 20171017
  92. OXALIPLATIN. [Suspect]
     Active Substance: OXALIPLATIN
     Dosage: 135 UNK
     Route: 042
     Dates: start: 20170511, end: 20170511
  93. OXALIPLATIN. [Suspect]
     Active Substance: OXALIPLATIN
     Dosage: 135 UNK
     Route: 042
     Dates: start: 20170530, end: 20170530
  94. OXALIPLATIN. [Suspect]
     Active Substance: OXALIPLATIN
     Dosage: 135 UNK
     Route: 042
     Dates: start: 20170627, end: 20170627
  95. NOVAMINSULFON [Suspect]
     Active Substance: METAMIZOLE
     Indication: ABDOMINAL PAIN UPPER
     Dosage: UNK
     Route: 042
  96. FLUOROURACIL. [Suspect]
     Active Substance: FLUOROURACIL
     Dosage: 636 UNK
     Route: 042
     Dates: start: 20170725, end: 20170725
  97. FLUOROURACIL. [Suspect]
     Active Substance: FLUOROURACIL
     Dosage: 636 UNK
     Route: 042
     Dates: start: 20171128, end: 20171128
  98. MAGNESIUM [Concomitant]
     Active Substance: MAGNESIUM
     Indication: PRODUCT USED FOR UNKNOWN INDICATION
     Dosage: UNK
     Route: 065
  99. DUROGESIC SMAT [Concomitant]
     Active Substance: FENTANYL
     Indication: PRODUCT USED FOR UNKNOWN INDICATION
     Dosage: UNK
     Route: 065
  100. NEUROTRAT [Concomitant]
     Indication: PRODUCT USED FOR UNKNOWN INDICATION
     Dosage: UNK
     Route: 065

REACTIONS (1)
  - Hip fracture [Recovered/Resolved]

NARRATIVE: CASE EVENT DATE: 20180506
